FAERS Safety Report 13639274 (Version 1)
Quarter: 2017Q2

REPORT INFORMATION
  Report Type: Spontaneous
  Country: US (occurrence: US)
  Receive Date: 20170609
  Receipt Date: 20170609
  Transmission Date: 20170830
  Serious: No
  Sender: FDA-Public Use
  Company Number: US-ROCHE-562414

PATIENT
  Age: 53 Year
  Sex: Female
  Weight: 68.2 kg

DRUGS (8)
  1. ZOLOFT [Concomitant]
     Active Substance: SERTRALINE HYDROCHLORIDE
     Indication: ANXIETY
     Route: 065
     Dates: start: 200705, end: 20080308
  2. KLONOPIN [Suspect]
     Active Substance: CLONAZEPAM
     Indication: ANXIETY
     Dosage: TAKEN AT NIGHT
     Route: 048
  3. MULTIVITAMIN NOS [Concomitant]
     Active Substance: VITAMINS
     Route: 065
  4. KLONOPIN [Suspect]
     Active Substance: CLONAZEPAM
     Dosage: DOSAGE FURTHER TAPERED TO HALF A TABLET EVERY OTHER DAY
     Route: 048
     Dates: start: 20080328, end: 20091110
  5. PREMARIN [Concomitant]
     Active Substance: ESTROGENS, CONJUGATED
     Route: 065
  6. KLONOPIN [Suspect]
     Active Substance: CLONAZEPAM
     Dosage: DOSAGE TAPERED TO HALF A TABLET ONCE DAILY
     Route: 048
     Dates: start: 20080313, end: 20080327
  7. FOLIC ACID. [Concomitant]
     Active Substance: FOLIC ACID
     Route: 065
  8. NEURONTIN [Concomitant]
     Active Substance: GABAPENTIN
     Route: 065

REACTIONS (7)
  - Paraesthesia [Unknown]
  - Tinnitus [Not Recovered/Not Resolved]
  - Back pain [Not Recovered/Not Resolved]
  - Eye irritation [Unknown]
  - Musculoskeletal pain [Unknown]
  - Neck pain [Unknown]
  - Burning sensation [Not Recovered/Not Resolved]

NARRATIVE: CASE EVENT DATE: 20080421
